FAERS Safety Report 15410103 (Version 1)
Quarter: 2018Q3

REPORT INFORMATION
  Report Type: Spontaneous
  Country: IT (occurrence: IT)
  Receive Date: 20180921
  Receipt Date: 20180921
  Transmission Date: 20181010
  Serious: Yes (Other)
  Sender: FDA-Public Use
  Company Number: IT-TEVA-2018-IT-956780

PATIENT
  Age: 48 Year
  Sex: Female
  Weight: 100 kg

DRUGS (5)
  1. PACLITAXEL TEVA ITALIA [Suspect]
     Active Substance: PACLITAXEL
     Indication: METAPLASTIC BREAST CARCINOMA
     Route: 065
     Dates: start: 20180528
  2. TINSET ADULTI 30 MG COMPRESSE [Concomitant]
     Indication: PREMEDICATION
     Route: 065
     Dates: start: 20180528
  3. SOLDESAM [Concomitant]
     Active Substance: DEXAMETHASONE
     Indication: PREMEDICATION
     Route: 065
     Dates: start: 20180528
  4. RANITIDINE. [Concomitant]
     Active Substance: RANITIDINE
     Indication: PREMEDICATION
     Route: 065
     Dates: start: 20180528
  5. LIMICAN 50 MG/2 ML SOLUZIONE INIETTABILE [Concomitant]
     Indication: PREMEDICATION
     Route: 065
     Dates: start: 20180528

REACTIONS (3)
  - Hypoxia [Recovered/Resolved]
  - Rash [Recovered/Resolved]
  - Dyspnoea [Recovered/Resolved]

NARRATIVE: CASE EVENT DATE: 20180606
